FAERS Safety Report 19053351 (Version 12)
Quarter: 2024Q4

REPORT INFORMATION
  Report Type: Spontaneous
  Country: US (occurrence: US)
  Receive Date: 20210324
  Receipt Date: 20241219
  Transmission Date: 20250114
  Serious: Yes (Hospitalization, Disabling, Other)
  Sender: PFIZER
  Company Number: US-PFIZER INC-2020033170

PATIENT
  Age: 71 Year
  Sex: Female
  Weight: 63.5 kg

DRUGS (17)
  1. XELJANZ [Suspect]
     Active Substance: TOFACITINIB CITRATE
     Indication: Ankylosing spondylitis
     Dosage: 5 MG, 2X/DAY
     Route: 048
  2. ASPIRIN [Concomitant]
     Active Substance: ASPIRIN
     Dosage: 81 MG, 1X/DAY (AT NIGHT)
  3. B COMPLEX WITH VITAMIN C [ASCORBIC ACID;VITAMIN B COMPLEX] [Concomitant]
     Dosage: 60 MG, 1X/DAY (IN THE MORNING)
  4. BIOTIN [Concomitant]
     Active Substance: BIOTIN
     Dosage: 1000 MG, 1X/DAY (AT NIGHT)
  5. CALCIUM CITRATE [Concomitant]
     Active Substance: CALCIUM CITRATE
     Dosage: 630 MG, 1X/DAY (IN THE MORNING)
  6. CALCIUM CITRATE + D3 [Concomitant]
     Dosage: UNK, 1X/DAY (630MG PLUS D3 500 IU)
  7. CELECOXIB [Concomitant]
     Active Substance: CELECOXIB
     Dosage: 200 MG, 1X/DAY (IN THE MORNING)
  8. CELECOXIB [Concomitant]
     Active Substance: CELECOXIB
     Dosage: 200 MG, 1X/DAY (AT NIGHT)
  9. COVID-19 VACCINE [Concomitant]
     Dosage: DOSE 2 (BOOSTER), SINGLE
     Dates: start: 20220407, end: 20220407
  10. VITAMIN D3 [Concomitant]
     Active Substance: CHOLECALCIFEROL
     Dosage: 500 IU, 1X/DAY (IN THE MORNING)
  11. ESCITALOPRAM [Concomitant]
     Active Substance: ESCITALOPRAM OXALATE
     Dosage: 10 MG, 1X/DAY (IN THE MORNING)
  12. FISH OIL [Concomitant]
     Active Substance: FISH OIL
     Dosage: 1000 MG, 1X/DAY (IN THE MORNING)
  13. GABAPENTIN [Concomitant]
     Active Substance: GABAPENTIN
     Dosage: 100 MG, 2X/WEEK (TWO DAYS WEEK)
  14. LEVOTHYROXINE SODIUM [Concomitant]
     Active Substance: LEVOTHYROXINE SODIUM
     Dosage: 50 MG, 1X/DAY (IN THE MORNING)
  15. LOSARTAN POTASSIUM [Concomitant]
     Active Substance: LOSARTAN POTASSIUM
     Dosage: 100 MG, 1X/DAY (IN THE MORNING)
  16. METOPROLOL [Concomitant]
     Active Substance: METOPROLOL
     Dosage: 50 MG, 1X/DAY (IN THE MORNING)
  17. PRAVASTATIN SODIUM [Concomitant]
     Active Substance: PRAVASTATIN SODIUM
     Dosage: 40 MG

REACTIONS (16)
  - Skull fracture [Unknown]
  - Fall [Unknown]
  - Knee arthroplasty [Unknown]
  - Rib fracture [Unknown]
  - Fall [Unknown]
  - Shoulder operation [Unknown]
  - Hand deformity [Unknown]
  - Rash [Unknown]
  - Movement disorder [Unknown]
  - Pain [Unknown]
  - Memory impairment [Unknown]
  - Dysphonia [Unknown]
  - Visual impairment [Unknown]
  - Tooth infection [Recovering/Resolving]
  - Dyspnoea [Unknown]
  - Blood pressure increased [Unknown]
